FAERS Safety Report 10391907 (Version 3)
Quarter: 2014Q3

REPORT INFORMATION
  Report Type: Spontaneous
  Country: JP (occurrence: JP)
  Receive Date: 20140819
  Receipt Date: 20140923
  Transmission Date: 20150326
  Serious: Yes (Other)
  Sender: FDA-Public Use
  Company Number: PHHY2014JP101167

PATIENT
  Age: 67 Year
  Sex: Female

DRUGS (2)
  1. ZOMETA [Suspect]
     Active Substance: ZOLEDRONIC ACID
     Indication: METASTASES TO BONE
     Dosage: 4 MG, PER ADMINISTRATION
     Route: 041
     Dates: start: 20100423, end: 20120413
  2. RANMARK [Suspect]
     Active Substance: DENOSUMAB
     Dosage: 120 MG, DAILY
     Route: 058
     Dates: start: 20120511, end: 20120815

REACTIONS (6)
  - Swelling [Recovered/Resolved]
  - Exposed bone in jaw [Recovered/Resolved]
  - Erythema [Recovered/Resolved]
  - Osteonecrosis of jaw [Recovered/Resolved]
  - Inflammation [Recovered/Resolved]
  - Oral disorder [Recovered/Resolved]

NARRATIVE: CASE EVENT DATE: 201310
